FAERS Safety Report 24037054 (Version 3)
Quarter: 2024Q3

REPORT INFORMATION
  Report Type: Report from Study
  Country: US (occurrence: US)
  Receive Date: 20240701
  Receipt Date: 20240911
  Transmission Date: 20241016
  Serious: Yes (Other)
  Sender: JOHNSON AND JOHNSON
  Company Number: US-JNJFOC-20240614873

PATIENT
  Age: 42 Year
  Sex: Female
  Weight: 55.3 kg

DRUGS (20)
  1. SELEXIPAG [Suspect]
     Active Substance: SELEXIPAG
     Indication: Pulmonary arterial hypertension
     Route: 048
     Dates: start: 20240529
  2. SELEXIPAG [Suspect]
     Active Substance: SELEXIPAG
     Dosage: 700 UG UNTIL 1600 UG
     Route: 048
  3. SELEXIPAG [Suspect]
     Active Substance: SELEXIPAG
     Route: 048
     Dates: start: 202405
  4. SELEXIPAG [Suspect]
     Active Substance: SELEXIPAG
     Dosage: AS OF 23/JUL/2024
     Route: 048
  5. SELEXIPAG [Suspect]
     Active Substance: SELEXIPAG
     Route: 048
     Dates: start: 20240529
  6. EMPAGLIFLOZIN [Concomitant]
     Active Substance: EMPAGLIFLOZIN
  7. TORSEMIDE [Concomitant]
     Active Substance: TORSEMIDE
  8. AMBRISENTAN [Concomitant]
     Active Substance: AMBRISENTAN
  9. TADALAFIL [Concomitant]
     Active Substance: TADALAFIL
  10. CARVEDILOL [Concomitant]
     Active Substance: CARVEDILOL
  11. DIGOXIN [Concomitant]
     Active Substance: DIGOXIN
  12. ATORVASTATIN [Concomitant]
     Active Substance: ATORVASTATIN
  13. SPIRONOLACTONE [Concomitant]
     Active Substance: SPIRONOLACTONE
  14. ISOSORBIDE MONONITRATE [Concomitant]
     Active Substance: ISOSORBIDE MONONITRATE
  15. ERGOCALCIFEROL [Concomitant]
     Active Substance: ERGOCALCIFEROL
  16. MINOXIDIL [Concomitant]
     Active Substance: MINOXIDIL
  17. OXYCODONE AND ACETAMINOPHEN [Concomitant]
     Active Substance: ACETAMINOPHEN\OXYCODONE HYDROCHLORIDE
     Dosage: 5-325 MG
  18. ONDANSETRON [Concomitant]
     Active Substance: ONDANSETRON
  19. LOPERAMIDE [Concomitant]
     Active Substance: LOPERAMIDE
  20. ENTRESTO [Concomitant]
     Active Substance: SACUBITRIL\VALSARTAN
     Dosage: 97-103 MG

REACTIONS (8)
  - Headache [Recovered/Resolved]
  - Fatigue [Recovered/Resolved]
  - Dyspnoea exertional [Not Recovered/Not Resolved]
  - Vertigo [Recovered/Resolved]
  - Diarrhoea [Recovered/Resolved]
  - Pain in jaw [Recovered/Resolved]
  - Insomnia [Recovered/Resolved]
  - Off label use [Unknown]

NARRATIVE: CASE EVENT DATE: 20240609
